FAERS Safety Report 6762269-8 (Version None)
Quarter: 2010Q2

REPORT INFORMATION
  Report Type: 
  Country: None (occurrence: None)
  Receive Date: 20100609
  Receipt Date: 20100531
  Transmission Date: 20101027
  Serious: Yes (Death, Hospitalization)
  Sender: FDA-Public Use
  Company Number: FR-JNJFOC-20100508872

PATIENT
  Sex: Male

DRUGS (14)
  1. IBUPROFENE [Suspect]
     Indication: SCIATICA
     Route: 048
  2. PARACETAMOL [Suspect]
     Route: 048
  3. PARACETAMOL [Suspect]
     Indication: SCIATICA
     Route: 048
  4. LAMALINE [Suspect]
     Indication: SCIATICA
     Dosage: 1-2 DOSES DAILY
     Route: 048
  5. LYRICA [Suspect]
     Indication: SCIATICA
     Route: 048
  6. CONTRAMAL [Suspect]
     Indication: SCIATICA
     Route: 048
  7. CONTRAMAL [Suspect]
     Route: 048
  8. OMEPRAZOLE [Suspect]
     Indication: DRUG USE FOR UNKNOWN INDICATION
     Route: 048
  9. AUGMENTIN '125' [Suspect]
     Indication: PNEUMONIA
     Route: 042
  10. OFLOCET [Suspect]
     Indication: PNEUMONIA
     Route: 042
  11. VOLTAREN [Concomitant]
     Indication: SCIATICA
     Route: 030
  12. ACUPAN [Concomitant]
     Indication: SCIATICA
     Route: 030
  13. FELODIPINE [Concomitant]
     Indication: HYPERTENSION
     Route: 048
  14. KARDEGIC [Concomitant]
     Indication: PERIPHERAL ARTERIAL OCCLUSIVE DISEASE
     Route: 048

REACTIONS (1)
  - CYTOLYTIC HEPATITIS [None]
